FAERS Safety Report 8319651-7 (Version None)
Quarter: 2012Q2

REPORT INFORMATION
  Report Type: 
  Country: None (occurrence: None)
  Receive Date: 20120427
  Receipt Date: 20120416
  Transmission Date: 20120825
  Serious: Yes (Other)
  Sender: FDA-Public Use
  Company Number: US-JNJFOC-20120409363

PATIENT
  Age: 47 Year
  Sex: Male
  Weight: 92.99 kg

DRUGS (10)
  1. PROBIOTICS [Concomitant]
     Indication: DYSPEPSIA
     Route: 065
  2. HYDROXYZINE HCL [Concomitant]
     Indication: SLEEP DISORDER THERAPY
     Route: 065
     Dates: start: 20120402
  3. MAGNESIUM CITRATE [Concomitant]
     Indication: GASTROINTESTINAL DISORDER
     Route: 065
     Dates: start: 20120331
  4. BENADRYL [Suspect]
     Indication: URTICARIA
     Dosage: 1-2 KAPGELS, 1 TO 2 TIMES A DAY
     Route: 048
     Dates: start: 20120329
  5. HYDROXYZINE HCL [Concomitant]
     Indication: URTICARIA
     Route: 065
     Dates: start: 20120402
  6. PREDNISONE [Suspect]
     Indication: HYPERSENSITIVITY
     Route: 065
     Dates: start: 20120331
  7. PEPSIN [Concomitant]
     Indication: GASTROINTESTINAL DISORDER
     Route: 065
     Dates: start: 20120331
  8. CURAMIN [Concomitant]
     Indication: BACK PAIN
     Route: 065
  9. IBUPROFEN [Concomitant]
     Indication: BACK PAIN
     Route: 065
  10. BENADRYL [Suspect]
     Indication: SLEEP DISORDER THERAPY
     Dosage: 1-2 KAPGELS, 1 TO 2 TIMES A DAY
     Route: 048
     Dates: start: 20120329

REACTIONS (5)
  - PHARYNGEAL OEDEMA [None]
  - URTICARIA [None]
  - CHEST PAIN [None]
  - SALIVARY HYPERSECRETION [None]
  - OFF LABEL USE [None]
